FAERS Safety Report 12707170 (Version 1)
Quarter: 2016Q3

REPORT INFORMATION
  Report Type: Spontaneous
  Country: FR (occurrence: FR)
  Receive Date: 20160901
  Receipt Date: 20160901
  Transmission Date: 20161109
  Serious: Yes (Hospitalization)
  Sender: FDA-Public Use
  Company Number: FR-PFIZER INC-2016399448

PATIENT
  Age: 47 Year
  Sex: Female

DRUGS (14)
  1. ADVAGRAF [Suspect]
     Active Substance: TACROLIMUS
     Indication: PROPHYLAXIS AGAINST TRANSPLANT REJECTION
     Dosage: UNK
     Route: 048
     Dates: end: 201607
  2. ADVAGRAF [Suspect]
     Active Substance: TACROLIMUS
     Dosage: 2.5 MG, 1X/DAY
     Route: 048
     Dates: start: 201607, end: 20160728
  3. INEXIUM [Suspect]
     Active Substance: ESOMEPRAZOLE
     Dosage: 40 MG, 1X/DAY
     Route: 048
     Dates: start: 201607, end: 20160729
  4. TRIATEC [Concomitant]
     Active Substance: RAMIPRIL
     Dosage: UNK
  5. BISOPROLOL [Concomitant]
     Active Substance: BISOPROLOL
     Dosage: UNK
  6. XANAX [Suspect]
     Active Substance: ALPRAZOLAM
     Indication: ANXIETY
     Dosage: UNK
     Route: 048
     Dates: end: 201607
  7. CELLCEPT [Concomitant]
     Active Substance: MYCOPHENOLATE MOFETIL\MYCOPHENOLATE MOFETIL HYDROCHLORIDE
     Dosage: UNK
  8. XANAX [Suspect]
     Active Substance: ALPRAZOLAM
     Dosage: INCREASED DOSE
     Route: 048
     Dates: start: 201607, end: 20160729
  9. INEXIUM [Suspect]
     Active Substance: ESOMEPRAZOLE
     Indication: GASTROINTESTINAL PAIN
     Dosage: UNK
     Route: 048
     Dates: end: 201607
  10. SEROPLEX [Suspect]
     Active Substance: ESCITALOPRAM OXALATE
     Indication: DEPRESSION
     Dosage: UNK
     Route: 048
     Dates: end: 201607
  11. KAYEXALATE [Concomitant]
     Active Substance: SODIUM POLYSTYRENE SULFONATE
     Dosage: UNK
  12. TAHOR [Suspect]
     Active Substance: ATORVASTATIN CALCIUM
     Indication: CARDIOVASCULAR EVENT PROPHYLAXIS
     Dosage: 10 MG, 1X/DAY
     Route: 048
     Dates: end: 20160729
  13. ADVAGRAF [Suspect]
     Active Substance: TACROLIMUS
     Dosage: UNK
     Route: 048
     Dates: start: 20160729
  14. SEROPLEX [Suspect]
     Active Substance: ESCITALOPRAM OXALATE
     Dosage: INCREASED DOSE
     Route: 048
     Dates: start: 201607, end: 20160729

REACTIONS (6)
  - Blood alkaline phosphatase increased [Recovered/Resolved]
  - Alanine aminotransferase increased [Recovering/Resolving]
  - Hepatitis cholestatic [Recovering/Resolving]
  - Cerebral ischaemia [Recovered/Resolved]
  - Aspartate aminotransferase increased [Recovering/Resolving]
  - Gamma-glutamyltransferase increased [Recovering/Resolving]

NARRATIVE: CASE EVENT DATE: 20160729
